FAERS Safety Report 4280320-4 (Version None)
Quarter: 2004Q1

REPORT INFORMATION
  Report Type: 
  Country: None (occurrence: None)
  Receive Date: 20040126
  Receipt Date: 20040119
  Transmission Date: 20041129
  Serious: Yes (Death, Hospitalization)
  Sender: FDA-Public Use
  Company Number: T04-USA-00232-01

PATIENT
  Age: 81 Year
  Sex: Male
  Weight: 72.8023 kg

DRUGS (11)
  1. MEMANTINE  (OPEN LABEL) (MEMANTINE) [Suspect]
     Indication: DEMENTIA ALZHEIMER'S TYPE
     Dosage: 20 MG QD PO
     Route: 048
     Dates: start: 20030123, end: 20040111
  2. GALANTAMINE [Concomitant]
  3. INSULIN HUMULIN-N (INSULIN) [Concomitant]
  4. LISINOPRIL [Concomitant]
  5. PAROXETINE HCL [Concomitant]
  6. RANTACID (RANITIDINE HYDROCHLORIDE) [Concomitant]
  7. ACTOS                           /CAN/(PIOGLITAZONE HYDROCHLORIDE) [Concomitant]
  8. MULTI-VITAMINS [Concomitant]
  9. VITAMIN E    /GFR/(VEGETABLE OIL) [Concomitant]
  10. ASPIRIN [Concomitant]
  11. CIPRO ^BAYER^ (CIPROFLOXACIN) [Concomitant]

REACTIONS (6)
  - DYSPNOEA [None]
  - DYSSTASIA [None]
  - ELECTROCARDIOGRAM Q WAVE ABNORMAL [None]
  - ELECTROCARDIOGRAM ST-T SEGMENT ABNORMAL [None]
  - SINUS CONGESTION [None]
  - URINARY TRACT INFECTION [None]
